FAERS Safety Report 21051873 (Version 1)
Quarter: 2022Q3

REPORT INFORMATION
  Report Type: Spontaneous
  Country: GB (occurrence: GB)
  Receive Date: 20220707
  Receipt Date: 20220707
  Transmission Date: 20221026
  Serious: No
  Sender: FDA-Public Use
  Company Number: GB-MHRA-MED-202206291452280450-WJGMC

PATIENT
  Age: 41 Year
  Sex: Female

DRUGS (3)
  1. METRONIDAZOLE [Suspect]
     Active Substance: METRONIDAZOLE
     Dosage: UNK
     Route: 065
  2. AMOXICILLIN [Suspect]
     Active Substance: AMOXICILLIN
     Dosage: (GENERICS UK AMOXICILLIN)
     Route: 065
  3. MACROBID [Suspect]
     Active Substance: NITROFURANTOIN\NITROFURANTOIN MONOHYDRATE
     Dosage: 100 MG
     Route: 065

REACTIONS (4)
  - Rash [Unknown]
  - Dizziness [Unknown]
  - Dyspnoea [Unknown]
  - Medication error [Unknown]
